FAERS Safety Report 9808609 (Version 2)
Quarter: 2014Q1

REPORT INFORMATION
  Report Type: Report from Study
  Country: US (occurrence: US)
  Receive Date: 20140110
  Receipt Date: 20140206
  Transmission Date: 20141002
  Serious: Yes (Hospitalization, Other)
  Sender: FDA-Public Use
  Company Number: US-PFIZER INC-2014002008

PATIENT
  Age: 63 Year
  Sex: Male

DRUGS (5)
  1. OXALIPLATIN [Suspect]
     Indication: COLON CANCER
     Dosage: 85 MG/KG, CYCLIC, EVERY 2 WEEKS
     Route: 042
     Dates: start: 20130626
  2. FLUOROURACIL [Suspect]
     Indication: COLON CANCER
     Dosage: 3500  (UNIT NOT PROVIDED), CYCLIC EVERY 2 WEEKS
     Route: 042
     Dates: start: 20130626
  3. IRINOTECAN HCL [Suspect]
     Indication: COLON CANCER
     Dosage: 165 MG/M2, CYCLIC, EVERY 2 WEEKS
     Route: 042
     Dates: start: 20130626
  4. LEUCOVORIN [Suspect]
     Indication: COLON CANCER
     Dosage: 200 MG/KG, CYCLIC, EVERY 2 WEEKS
     Route: 042
     Dates: start: 20130626
  5. BEVACIZUMAB [Suspect]
     Indication: COLON CANCER
     Dosage: 5 MG/KG, CYCLIC, EVERY 2 WEEKS
     Route: 042
     Dates: start: 20130626, end: 20131101

REACTIONS (3)
  - Pyrexia [Recovered/Resolved]
  - Urosepsis [Recovered/Resolved with Sequelae]
  - Urinary tract infection [Recovered/Resolved with Sequelae]
